FAERS Safety Report 10700357 (Version 2)
Quarter: 2015Q1

REPORT INFORMATION
  Report Type: Spontaneous
  Country: ES (occurrence: None)
  Receive Date: 20150107
  Receipt Date: 20150112
  Transmission Date: 20150721
  Serious: Yes (Other)
  Sender: FDA-Public Use
  Company Number: 2014ES011222

PATIENT
  Sex: Male

DRUGS (1)
  1. ELIGARD [Suspect]
     Active Substance: LEUPROLIDE ACETATE
     Indication: PROSTATE CANCER
     Dosage: 22.5 MG, Q3MONTHS, SUBCUTANEOUS
     Route: 058
     Dates: start: 2011

REACTIONS (5)
  - Quality of life decreased [None]
  - Gait disturbance [None]
  - Pain in extremity [None]
  - Myalgia [None]
  - Brachytherapy [None]

NARRATIVE: CASE EVENT DATE: 2014
